FAERS Safety Report 8424766-9 (Version None)
Quarter: 2012Q2

REPORT INFORMATION
  Report Type: 
  Country: None (occurrence: None)
  Receive Date: 20120611
  Receipt Date: 20120601
  Transmission Date: 20120825
  Serious: No
  Sender: FDA-Public Use
  Company Number: US-BIOGENIDEC-2012BI019702

PATIENT
  Sex: Female

DRUGS (1)
  1. TYSABRI [Suspect]
     Indication: MULTIPLE SCLEROSIS
     Route: 042
     Dates: start: 20090415

REACTIONS (8)
  - MEMORY IMPAIRMENT [None]
  - TREMOR [None]
  - DYSGRAPHIA [None]
  - URINARY TRACT INFECTION [None]
  - INSOMNIA [None]
  - FATIGUE [None]
  - CENTRAL NERVOUS SYSTEM LESION [None]
  - ASTHENIA [None]
